FAERS Safety Report 18340041 (Version 1)
Quarter: 2020Q4

REPORT INFORMATION
  Report Type: Spontaneous
  Country: US (occurrence: US)
  Receive Date: 20201002
  Receipt Date: 20201002
  Transmission Date: 20210113
  Serious: Yes (Other)
  Sender: FDA-Public Use
  Company Number: US-FERRINGPH-2020FE06647

PATIENT
  Sex: Male

DRUGS (1)
  1. STIMATE [Suspect]
     Active Substance: DESMOPRESSIN ACETATE
     Indication: PRODUCT USED FOR UNKNOWN INDICATION
     Dosage: TAKEN ONCE BEFORE SURGERY
     Route: 065

REACTIONS (3)
  - Loss of consciousness [Unknown]
  - Recalled product administered [Unknown]
  - Out of specification product use [Unknown]
